FAERS Safety Report 26007050 (Version 1)
Quarter: 2025Q4

REPORT INFORMATION
  Report Type: Spontaneous
  Country: SA (occurrence: None)
  Receive Date: 20251106
  Receipt Date: 20251106
  Transmission Date: 20260118
  Serious: Yes (Disabling)
  Sender: FDA-CTU
  Company Number: None

PATIENT
  Age: 32 Year
  Sex: Male
  Weight: 80 kg

DRUGS (1)
  1. LUSTRAL [Suspect]
     Active Substance: SERTRALINE HYDROCHLORIDE
     Indication: Abdominal pain upper
     Dates: start: 20230815, end: 20240505

REACTIONS (12)
  - Paraesthesia [None]
  - Panic attack [None]
  - Depression [None]
  - Heart rate increased [None]
  - Flat affect [None]
  - Skin burning sensation [None]
  - Burning sensation [None]
  - Burning sensation [None]
  - Genital burning sensation [None]
  - Sensory loss [None]
  - Small fibre neuropathy [None]
  - Drug withdrawal syndrome [None]

NARRATIVE: CASE EVENT DATE: 20240506
